FAERS Safety Report 23876519 (Version 1)
Quarter: 2024Q2

REPORT INFORMATION
  Report Type: Spontaneous
  Country: US (occurrence: US)
  Receive Date: 20240521
  Receipt Date: 20240521
  Transmission Date: 20240716
  Serious: No
  Sender: FDA-Public Use
  Company Number: US-ABBVIE-5763360

PATIENT
  Age: 8 Year
  Sex: Male

DRUGS (1)
  1. UPADACITINIB [Suspect]
     Active Substance: UPADACITINIB
     Indication: Alopecia totalis
     Dosage: DAILY
     Route: 048

REACTIONS (1)
  - Alopecia totalis [Recovering/Resolving]
